FAERS Safety Report 5163509-1 (Version None)
Quarter: 2006Q4

REPORT INFORMATION
  Report Type: 
  Country: None (occurrence: None)
  Receive Date: 20061124
  Receipt Date: 20061111
  Transmission Date: 20070319
  Serious: Yes (Other)
  Sender: FDA-Public Use
  Company Number: 2006139858

PATIENT
  Sex: Female

DRUGS (1)
  1. CHANTIX [Suspect]
     Dosage: 0.5 MG (0.5 MG, 1 IN 1 D)
     Dates: start: 20061108

REACTIONS (7)
  - COLITIS [None]
  - CONDITION AGGRAVATED [None]
  - CONSTIPATION [None]
  - FLATULENCE [None]
  - GASTROOESOPHAGEAL REFLUX DISEASE [None]
  - NAUSEA [None]
  - ORAL INTAKE REDUCED [None]
